FAERS Safety Report 5981626-0 (Version None)
Quarter: 2008Q4

REPORT INFORMATION
  Report Type: 
  Country: None (occurrence: None)
  Receive Date: 20081205
  Receipt Date: 20081126
  Transmission Date: 20090506
  Serious: Yes (Other)
  Sender: FDA-Public Use
  Company Number: KR-JNJFOC-20081200298

PATIENT
  Age: 33 Year
  Sex: Female

DRUGS (2)
  1. RISPERIDONE [Suspect]
     Route: 048
  2. RISPERIDONE [Suspect]
     Indication: SCHIZOPHRENIA, PARANOID TYPE
     Route: 048

REACTIONS (3)
  - AMENORRHOEA [None]
  - TARDIVE DYSKINESIA [None]
  - UNEVALUABLE EVENT [None]
